FAERS Safety Report 7945273-3 (Version None)
Quarter: 2011Q4

REPORT INFORMATION
  Report Type: 
  Country: None (occurrence: None)
  Receive Date: 20111129
  Receipt Date: 20101102
  Transmission Date: 20120403
  Serious: No
  Sender: FDA-Public Use
  Company Number: US-GLAXOSMITHKLINE-A0890289A

PATIENT
  Age: 51 Year
  Sex: Female
  Weight: 64.1 kg

DRUGS (3)
  1. INSULIN [Concomitant]
     Indication: DIABETES MELLITUS
  2. CYMBALTA [Suspect]
     Indication: PRODUCT USED FOR UNKNOWN INDICATION
     Dosage: 30MG UNKNOWN
     Route: 065
  3. WELLBUTRIN SR [Suspect]
     Indication: MAJOR DEPRESSION
     Dosage: 150MG PER DAY
     Route: 048
     Dates: start: 20101007, end: 20101029

REACTIONS (4)
  - DRUG INTERACTION [None]
  - TENSION [None]
  - DRUG INTOLERANCE [None]
  - PANIC REACTION [None]
